FAERS Safety Report 9103171 (Version 2)
Quarter: 2013Q1

REPORT INFORMATION
  Report Type: Spontaneous
  Country: NL (occurrence: NL)
  Receive Date: 20130219
  Receipt Date: 20130228
  Transmission Date: 20140127
  Serious: Yes (Hospitalization)
  Sender: FDA-Public Use
  Company Number: NL-VERTEX PHARMACEUTICALS INC.-2013-001392

PATIENT
  Sex: Female
  Weight: 58 kg

DRUGS (7)
  1. INCIVO [Suspect]
     Indication: HEPATITIS C
     Dosage: 750 MG, TID
     Dates: start: 20121115, end: 20121124
  2. PEG INTERFERON [Suspect]
     Indication: HEPATITIS C
     Dosage: DOSAGE FORM: UNSPECIFIED
     Route: 058
     Dates: start: 20121115, end: 20121124
  3. TRUVADA [Suspect]
     Indication: HIV INFECTION
     Dosage: DOSAGE FORM: UNKNOWN
     Route: 048
     Dates: start: 20121108, end: 20121126
  4. RIBAVIRIN [Concomitant]
     Indication: HEPATITIS C
     Dosage: DOSAGE FORM: UNKNOWN
     Route: 048
     Dates: start: 20121115, end: 20121124
  5. RALTEGRAVIR [Concomitant]
     Indication: HIV INFECTION
     Dosage: DOSAGE FORM: UNKNOWN
     Route: 048
  6. METOPROLOL [Concomitant]
     Dosage: DOSAGE FORM: UNKNOWN
     Route: 048
  7. ACETYLSALICYLIC ACID [Concomitant]
     Dosage: DOSAGE FORM: UNKNOWN
     Route: 048

REACTIONS (8)
  - Epistaxis [Recovered/Resolved]
  - Dehydration [Unknown]
  - Asthenia [Unknown]
  - Blood phosphorus decreased [Unknown]
  - Nausea [Recovered/Resolved]
  - Hypophagia [Unknown]
  - Feeling abnormal [Unknown]
  - Off label use [Recovered/Resolved]
